FAERS Safety Report 20639407 (Version 1)
Quarter: 2022Q1

REPORT INFORMATION
  Report Type: Spontaneous
  Country: US (occurrence: US)
  Receive Date: 20220326
  Receipt Date: 20220326
  Transmission Date: 20220423
  Serious: Yes (Other)
  Sender: FDA-Public Use
  Company Number: US-Shilpa Medicare Limited-SML-US-2022-00254

PATIENT
  Age: 45 Year
  Sex: Female

DRUGS (6)
  1. DOCETAXEL [Suspect]
     Active Substance: DOCETAXEL
     Indication: Breast cancer
  2. CARBOPLATIN [Suspect]
     Active Substance: CARBOPLATIN
     Indication: Breast cancer
  3. TRASTUZUMAB [Suspect]
     Active Substance: TRASTUZUMAB
     Indication: Breast cancer
     Dosage: LOADING DOSE
  4. TRASTUZUMAB [Suspect]
     Active Substance: TRASTUZUMAB
  5. PERTUZUMAB [Suspect]
     Active Substance: PERTUZUMAB
     Indication: Breast cancer
     Dosage: LOADING DOSE
  6. PERTUZUMAB [Suspect]
     Active Substance: PERTUZUMAB
     Dosage: FOR CYCLES 2 TO 6

REACTIONS (4)
  - Meibomian gland dysfunction [Recovered/Resolved]
  - Pupils unequal [Recovered/Resolved]
  - Disease progression [Unknown]
  - Neuropathy peripheral [Unknown]
